FAERS Safety Report 24677808 (Version 3)
Quarter: 2025Q3

REPORT INFORMATION
  Report Type: Report from Study
  Country: JP (occurrence: JP)
  Receive Date: 20241129
  Receipt Date: 20250816
  Transmission Date: 20251021
  Serious: Yes (Other)
  Sender: ALEXION PHARMACEUTICALS
  Company Number: JP-ASTRAZENECA-240132241_032320_P_1

PATIENT
  Age: 59 Year
  Sex: Female
  Weight: 88 kg

DRUGS (20)
  1. ANIFROLUMAB [Suspect]
     Active Substance: ANIFROLUMAB
     Indication: Systemic lupus erythematosus
     Dosage: 300 MILLIGRAM, Q4W
     Dates: start: 20230615, end: 20230928
  2. ANIFROLUMAB [Suspect]
     Active Substance: ANIFROLUMAB
     Dosage: 300 MILLIGRAM, Q4W
     Dates: start: 20231130
  3. PREDNISOLONE [Suspect]
     Active Substance: PREDNISOLONE
     Indication: Systemic lupus erythematosus
     Dosage: 5 MILLIGRAM, QD
     Dates: end: 20230712
  4. PREDNISOLONE [Suspect]
     Active Substance: PREDNISOLONE
     Dosage: 3 MILLIGRAM, QD
     Dates: start: 20230713, end: 20230809
  5. PREDNISOLONE [Suspect]
     Active Substance: PREDNISOLONE
     Dosage: 2 MILLIGRAM, QD
     Dates: start: 20230810, end: 20230914
  6. PREDNISOLONE [Suspect]
     Active Substance: PREDNISOLONE
     Dosage: 5 MILLIGRAM, QD
     Dates: start: 20230915, end: 20230924
  7. PREDNISOLONE [Suspect]
     Active Substance: PREDNISOLONE
     Dosage: 4 MILLIGRAM, QD
     Dates: start: 20230925, end: 20231105
  8. PREDNISOLONE [Suspect]
     Active Substance: PREDNISOLONE
     Dosage: 2 MILLIGRAM, QD
     Dates: start: 20231106, end: 20231227
  9. BETAMETHASONE [Suspect]
     Active Substance: BETAMETHASONE
     Indication: Systemic lupus erythematosus
     Dosage: 0.5 MILLIGRAM, QD
     Dates: start: 20231228, end: 20240122
  10. BETAMETHASONE [Suspect]
     Active Substance: BETAMETHASONE
     Dosage: 0.25 MILLIGRAM, QD
     Dates: start: 20240123, end: 20240218
  11. BETAMETHASONE [Suspect]
     Active Substance: BETAMETHASONE
     Dosage: 0.2 MILLIGRAM, QD
     Dates: start: 20240219, end: 20240317
  12. BETAMETHASONE [Suspect]
     Active Substance: BETAMETHASONE
     Dosage: 0.1 MILLIGRAM, QD
     Dates: start: 20240318, end: 20240414
  13. BETAMETHASONE [Suspect]
     Active Substance: BETAMETHASONE
     Dosage: 0.05 MILLIGRAM, QD
     Dates: start: 20240415
  14. PLAQUENIL [Concomitant]
     Active Substance: HYDROXYCHLOROQUINE SULFATE
     Indication: Systemic lupus erythematosus
  15. VONOPRAZAN FUMARATE [Concomitant]
     Active Substance: VONOPRAZAN FUMARATE
     Indication: Prophylaxis
     Dosage: 20 MILLIGRAM, QD
  16. SPIRONOLACTONE [Concomitant]
     Active Substance: SPIRONOLACTONE
     Indication: Systemic lupus erythematosus
     Dosage: 50 MILLIGRAM, QD
  17. CYMBALTA [Concomitant]
     Active Substance: DULOXETINE HYDROCHLORIDE
     Indication: Fibromyalgia
     Dosage: 60 MILLIGRAM, QD
  18. CORTRIL [Concomitant]
     Active Substance: HYDROCORTISONE
     Indication: Systemic lupus erythematosus
     Dosage: 15 MILLIGRAM, QD
  19. TRAMCET [Concomitant]
     Active Substance: ACETAMINOPHEN\TRAMADOL
     Indication: Fibromyalgia
     Dosage: 3 DOSAGE FORM, QD
  20. ZOLPIDEM TARTRATE [Concomitant]
     Active Substance: ZOLPIDEM TARTRATE
     Indication: Insomnia
     Dosage: 10 MILLIGRAM, QD

REACTIONS (3)
  - Erysipelas [Recovered/Resolved]
  - Bronchitis [Recovered/Resolved]
  - Off label use [Unknown]

NARRATIVE: CASE EVENT DATE: 20231022
